FAERS Safety Report 25163605 (Version 1)
Quarter: 2025Q2

REPORT INFORMATION
  Report Type: Spontaneous
  Country: US (occurrence: US)
  Receive Date: 20250405
  Receipt Date: 20250405
  Transmission Date: 20250717
  Serious: No
  Sender: ELI LILLY AND CO
  Company Number: US-ELI_LILLY_AND_COMPANY-US202503000750

PATIENT
  Age: 56 Year
  Sex: Male

DRUGS (1)
  1. EBGLYSS [Suspect]
     Active Substance: LEBRIKIZUMAB-LBKZ
     Indication: Dermatitis atopic
     Dosage: 500 MG, EVERY 2 WEEKS
     Route: 058
     Dates: start: 20250219, end: 20250219

REACTIONS (3)
  - Dermatitis atopic [Recovered/Resolved]
  - Drug hypersensitivity [Recovered/Resolved]
  - Conjunctivitis [Recovered/Resolved]

NARRATIVE: CASE EVENT DATE: 20250219
